FAERS Safety Report 13109897 (Version 1)
Quarter: 2017Q1

REPORT INFORMATION
  Report Type: Spontaneous
  Country: US (occurrence: US)
  Receive Date: 20170112
  Receipt Date: 20170112
  Transmission Date: 20170428
  Serious: No
  Sender: FDA-Public Use
  Company Number: US-ROCHE-1101218

PATIENT
  Age: 61 Year
  Sex: Female

DRUGS (10)
  1. REGLAN [Concomitant]
     Active Substance: METOCLOPRAMIDE HYDROCHLORIDE
     Route: 065
  2. BUMEX [Concomitant]
     Active Substance: BUMETANIDE
     Route: 065
  3. CATAPRES [Concomitant]
     Active Substance: CLONIDINE HYDROCHLORIDE
     Route: 065
  4. PRILOSEC [Concomitant]
     Active Substance: OMEPRAZOLE MAGNESIUM
     Route: 065
  5. TAGAMET [Concomitant]
     Active Substance: CIMETIDINE
     Route: 048
  6. QUININE [Concomitant]
     Active Substance: QUININE
     Indication: MUSCLE SPASMS
     Route: 065
  7. ASPIRIN. [Concomitant]
     Active Substance: ASPIRIN
  8. TRIDIL [Concomitant]
     Active Substance: NITROGLYCERIN
     Route: 065
  9. HUMAN INSULIN [Concomitant]
     Active Substance: INSULIN HUMAN
  10. ACTIVASE [Suspect]
     Active Substance: ALTEPLASE
     Indication: MYOCARDIAL INFARCTION
     Route: 042

REACTIONS (3)
  - Emotional distress [Unknown]
  - Slow response to stimuli [Unknown]
  - Vomiting [Unknown]
